FAERS Safety Report 6444515-3 (Version None)
Quarter: 2009Q4

REPORT INFORMATION
  Report Type: 
  Country: None (occurrence: None)
  Receive Date: 20091118
  Receipt Date: 20091106
  Transmission Date: 20100525
  Serious: Yes (Hospitalization)
  Sender: FDA-Public Use
  Company Number: IT-PFIZER INC-2009294700

PATIENT
  Age: 40 Year
  Sex: Female

DRUGS (2)
  1. ZITHROMAX [Suspect]
     Dosage: 500 MG, SINGLE
     Route: 048
     Dates: start: 20091002, end: 20091002
  2. LOSAPREX [Concomitant]
     Indication: HYPERTENSION
     Dosage: 50 MG, 1X/DAY
     Route: 048
     Dates: start: 20071001, end: 20091003

REACTIONS (2)
  - FACE OEDEMA [None]
  - HYPERAEMIA [None]
